FAERS Safety Report 6992100-7 (Version None)
Quarter: 2010Q3

REPORT INFORMATION
  Report Type: 
  Country: None (occurrence: None)
  Receive Date: 20100830
  Receipt Date: 20100715
  Transmission Date: 20110219
  Serious: No
  Sender: FDA-Public Use
  Company Number: 2010089237

PATIENT
  Age: 77 Year
  Sex: Male
  Weight: 81.2 kg

DRUGS (8)
  1. TOVIAZ [Suspect]
     Indication: BLADDER DISORDER
     Dosage: 8 MG,DAILY
     Dates: start: 20100713
  2. VESICARE [Suspect]
     Indication: BLADDER DISORDER
     Dosage: 5 MG,DAILY,ORAL
     Route: 048
     Dates: start: 20100101, end: 20100101
  3. HYDROCHLOROTHIAZIDE [Concomitant]
  4. DOXAZOSIN MESYLATE [Concomitant]
  5. HYDROXYUREA [Concomitant]
  6. ACETAMINOPHEN [Concomitant]
  7. LIPITOR [Concomitant]
  8. OMEPRAZOLE [Concomitant]

REACTIONS (5)
  - ASTHENIA [None]
  - CONSTIPATION [None]
  - DRY MOUTH [None]
  - POLLAKIURIA [None]
  - SLEEP DISORDER [None]
